FAERS Safety Report 20023315 (Version 4)
Quarter: 2022Q4

REPORT INFORMATION
  Report Type: Spontaneous
  Country: GB (occurrence: GB)
  Receive Date: 20211102
  Receipt Date: 20221108
  Transmission Date: 20230112
  Serious: Yes (Death, Other)
  Sender: FDA-Public Use
  Company Number: None

PATIENT
  Age: 88 Year
  Sex: Male
  Weight: 92 kg

DRUGS (19)
  1. OMEPRAZOLE [Suspect]
     Active Substance: OMEPRAZOLE
     Indication: Product used for unknown indication
     Dosage: 10 MILLIGRAM, QD
     Route: 048
     Dates: start: 20210910, end: 20211015
  2. OMEPRAZOLE [Suspect]
     Active Substance: OMEPRAZOLE
     Dosage: 2 DOSAGE FORM, QID
     Route: 065
     Dates: start: 20210122
  3. CHOLECALCIFEROL [Suspect]
     Active Substance: CHOLECALCIFEROL
     Indication: Product used for unknown indication
     Dosage: UNK UNK, QD TO BE TAKEN EACH MORNING
     Route: 065
     Dates: start: 20210122
  4. DILTIAZEM [Suspect]
     Active Substance: DILTIAZEM
     Indication: Product used for unknown indication
     Dosage: 1 DOSAGE FORM, QD (IN THE MORNING)
     Route: 065
     Dates: start: 20201109
  5. FLUOROURACIL [Suspect]
     Active Substance: FLUOROURACIL
     Indication: Product used for unknown indication
     Dosage: APPLY ONCE TO TWICE DAILY FOR 3-4 WEEKS
     Route: 065
     Dates: start: 20200326
  6. FLUOROURACIL [Suspect]
     Active Substance: FLUOROURACIL
     Dosage: APPLY ONCE TO TWICE DAILY FOR 3-4 WEEKS
     Route: 065
     Dates: start: 20211001
  7. RAMIPRIL [Suspect]
     Active Substance: RAMIPRIL
     Indication: Blood pressure abnormal
     Dosage: 1 DOSAGE FORM, QD (FOR BLOOD PRESSURE)
     Route: 065
     Dates: start: 20201015
  8. RAMIPRIL [Suspect]
     Active Substance: RAMIPRIL
     Dosage: 1 DOSAGE FORM, QD
     Route: 065
     Dates: start: 20210219
  9. TAMSULOSIN [Suspect]
     Active Substance: TAMSULOSIN
     Indication: Product used for unknown indication
     Dosage: 1 DOSAGE FORM, QD
     Route: 065
     Dates: start: 20210219
  10. TAMSULOSIN [Suspect]
     Active Substance: TAMSULOSIN
     Dosage: 1 DOSAGE FORM, TID (APPLY THE UNTIL LESION HAVE HEALED)
     Route: 065
     Dates: start: 20210910, end: 20210924
  11. NITROGLYCERIN [Suspect]
     Active Substance: NITROGLYCERIN
     Indication: Product used for unknown indication
     Dosage: 1 DOSAGE FORM (PUFF) AS NECESSARY
     Route: 060
     Dates: start: 20200326
  12. HYDROCORTISONE [Suspect]
     Active Substance: HYDROCORTISONE
     Indication: Product used for unknown indication
     Dosage: APPLY SPARINGLY TO THE AFFECTED AREA
     Route: 065
     Dates: start: 20211001
  13. HYDROCORTISONE [Suspect]
     Active Substance: HYDROCORTISONE
     Dosage: 350 MILLIGRAM
     Route: 065
     Dates: start: 20210910, end: 20211015
  14. ACETAMINOPHEN [Suspect]
     Active Substance: ACETAMINOPHEN
     Indication: Product used for unknown indication
     Dosage: 2 DOSAGE FORM, QID
     Route: 065
     Dates: start: 20210122
  15. ACETAMINOPHEN [Suspect]
     Active Substance: ACETAMINOPHEN
     Dosage: 1 DOSAGE FORM, QD
     Route: 065
     Dates: start: 20201015
  16. DABIGATRAN ETEXILATE [Suspect]
     Active Substance: DABIGATRAN ETEXILATE
     Indication: Anticoagulant therapy
     Dosage: 1 DOSAGE FORM, BID (TO THIN BLOOD)
     Route: 065
     Dates: start: 20201015
  17. CALCIUM CARBONATE\SODIUM ALGINATE\SODIUM BICARBONATE [Suspect]
     Active Substance: CALCIUM CARBONATE\SODIUM ALGINATE\SODIUM BICARBONATE
     Indication: Product used for unknown indication
     Dosage: 10 MILLILITER, QID
     Route: 065
     Dates: start: 20210910
  18. BENZALKONIUM CHLORIDE\DIMETHICONE\HYDROCORTISONE\NYSTATIN [Suspect]
     Active Substance: BENZALKONIUM CHLORIDE\DIMETHICONE\HYDROCORTISONE\NYSTATIN
     Indication: Skin lesion
     Dosage: 1 DOSAGE FORM, TID (APPLY UNTIL THE LESION)
     Route: 065
     Dates: start: 20210910, end: 20210924
  19. ISOPROPYL MYRISTATE\MINERAL OIL [Concomitant]
     Active Substance: ISOPROPYL MYRISTATE\MINERAL OIL
     Indication: Product used for unknown indication
     Dosage: 1 DOSAGE FORM, BID (APPLY)
     Route: 065
     Dates: start: 20200326

REACTIONS (1)
  - Erythema multiforme [Fatal]

NARRATIVE: CASE EVENT DATE: 20211015
